FAERS Safety Report 5602921-0 (Version None)
Quarter: 2008Q1

REPORT INFORMATION
  Report Type: 
  Country: None (occurrence: None)
  Receive Date: 20080125
  Receipt Date: 20080118
  Transmission Date: 20080703
  Serious: Yes (Other)
  Sender: FDA-Public Use
  Company Number: JP-ABBOTT-08P-087-0434299-00

PATIENT
  Age: 67 Year
  Sex: Male

DRUGS (4)
  1. WARFARIN SODIUM [Suspect]
     Indication: AORTIC VALVE REPLACEMENT
     Route: 048
  2. SEVOFLURANE [Concomitant]
     Indication: ANAESTHESIA
     Route: 065
  3. NITROUS OXIDE [Concomitant]
     Indication: ANAESTHESIA
     Route: 065
  4. OXYGEN [Concomitant]
     Indication: ANAESTHESIA
     Route: 065

REACTIONS (1)
  - ACUTE MYOCARDIAL INFARCTION [None]
